FAERS Safety Report 4441033-9 (Version None)
Quarter: 2004Q3

REPORT INFORMATION
  Report Type: 
  Country: None (occurrence: None)
  Receive Date: 20040831
  Receipt Date: 20040503
  Transmission Date: 20050211
  Serious: Yes (Other)
  Sender: FDA-Public Use
  Company Number: USA040362367

PATIENT
  Age: 10 Year
  Sex: Male
  Weight: 41 kg

DRUGS (3)
  1. SYMBYAX [Suspect]
     Indication: AFFECTIVE DISORDER
     Dosage: 1 DSG FORM/ 1 DAY
     Dates: start: 20040224, end: 20040224
  2. SYMBYAX [Suspect]
     Indication: AGGRESSION
     Dosage: 1 DSG FORM/ 1 DAY
     Dates: start: 20040224, end: 20040224
  3. DDAVP [Concomitant]

REACTIONS (1)
  - CONVULSION [None]
